FAERS Safety Report 4777689-0 (Version None)
Quarter: 2005Q3

REPORT INFORMATION
  Report Type: 
  Country: None (occurrence: None)
  Receive Date: 20050921
  Receipt Date: 20050901
  Transmission Date: 20060218
  Serious: Yes (Hospitalization)
  Sender: FDA-Public Use
  Company Number: US_0409105448

PATIENT
  Age: 37 Year
  Sex: Female
  Weight: 86 kg

DRUGS (10)
  1. DULOXETINE HYDROCHLORIDE [Suspect]
     Indication: MAJOR DEPRESSION
     Dosage: 60 MG/1 DAY
     Dates: start: 20040827, end: 20040908
  2. ADVIL [Concomitant]
  3. SOMA [Concomitant]
  4. VICODIN [Concomitant]
  5. SYNTHROID [Concomitant]
  6. TRANXENE [Concomitant]
  7. LAMICTAL [Concomitant]
  8. LITHIUM [Concomitant]
  9. COZAAR [Concomitant]
  10. SEROQUEL [Concomitant]

REACTIONS (23)
  - ALANINE AMINOTRANSFERASE INCREASED [None]
  - AMNESIA [None]
  - ASPARTATE AMINOTRANSFERASE INCREASED [None]
  - BLOOD ALBUMIN DECREASED [None]
  - BLOOD CALCIUM DECREASED [None]
  - BLOOD GLUCOSE INCREASED [None]
  - BLOOD LACTIC ACID INCREASED [None]
  - CHEST WALL PAIN [None]
  - CONSTIPATION [None]
  - CONTUSION [None]
  - DRUG INEFFECTIVE [None]
  - HAEMATOCRIT DECREASED [None]
  - HAEMOGLOBIN DECREASED [None]
  - HEADACHE [None]
  - HYPOTENSION [None]
  - INJURY [None]
  - LACERATION [None]
  - PLATELET COUNT INCREASED [None]
  - PROTEIN TOTAL DECREASED [None]
  - ROAD TRAFFIC ACCIDENT [None]
  - SUICIDE ATTEMPT [None]
  - TRAUMATIC HAEMORRHAGE [None]
  - WHITE BLOOD CELL COUNT INCREASED [None]
